FAERS Safety Report 24366436 (Version 2)
Quarter: 2024Q4

REPORT INFORMATION
  Report Type: Spontaneous
  Country: JP (occurrence: JP)
  Receive Date: 20240926
  Receipt Date: 20241105
  Transmission Date: 20250115
  Serious: Yes (Hospitalization, Other)
  Sender: LUNDBECK
  Company Number: JP-SA-2021SA376695

PATIENT

DRUGS (21)
  1. SABRIL [Suspect]
     Active Substance: VIGABATRIN
     Indication: Infantile spasms
     Dosage: 250 MG, BID
     Route: 048
     Dates: start: 20171208, end: 20171215
  2. SABRIL [Suspect]
     Active Substance: VIGABATRIN
     Dosage: 750 MG, BID
     Route: 048
     Dates: start: 20191211, end: 20200204
  3. SABRIL [Suspect]
     Active Substance: VIGABATRIN
     Dosage: 500 MG, BID
     Route: 048
     Dates: start: 20200205, end: 20220406
  4. SABRIL [Suspect]
     Active Substance: VIGABATRIN
     Dosage: 500 MG, QD
     Route: 048
     Dates: start: 20220407, end: 20220601
  5. SABRIL [Suspect]
     Active Substance: VIGABATRIN
     Dosage: 375 MG, BID
     Route: 048
     Dates: start: 20171216, end: 20171218
  6. SABRIL [Suspect]
     Active Substance: VIGABATRIN
     Dosage: 250 MG, BID
     Route: 048
     Dates: start: 20180316, end: 20180416
  7. SABRIL [Suspect]
     Active Substance: VIGABATRIN
     Dosage: 500 MG, BID
     Route: 048
     Dates: start: 20180417, end: 20180701
  8. SABRIL [Suspect]
     Active Substance: VIGABATRIN
     Dosage: 1000 MG, BID
     Route: 048
     Dates: start: 20180702, end: 20181130
  9. SABRIL [Suspect]
     Active Substance: VIGABATRIN
     Dosage: 1250 MG, BID
     Route: 048
     Dates: start: 20181201, end: 20190411
  10. SABRIL [Suspect]
     Active Substance: VIGABATRIN
     Dosage: 1500 MG, BID
     Route: 048
     Dates: start: 20190412, end: 20190709
  11. SABRIL [Suspect]
     Active Substance: VIGABATRIN
     Dosage: 1250 MG, BID
     Route: 048
     Dates: start: 20190710, end: 20191001
  12. SABRIL [Suspect]
     Active Substance: VIGABATRIN
     Dosage: 1000 MG, BID
     Route: 048
     Dates: start: 20191002, end: 20191210
  13. VALPROATE SODIUM [Concomitant]
     Active Substance: VALPROATE SODIUM
     Indication: Infantile spasms
     Dosage: DAILY DOSE: 400 MG
     Route: 048
  14. SIROLIMUS [Concomitant]
     Active Substance: SIROLIMUS
     Indication: Infantile spasms
     Dosage: DAILY DOSE: 0.8 G
     Route: 061
     Dates: start: 20181005
  15. VIMPAT [Concomitant]
     Active Substance: LACOSAMIDE
     Indication: Infantile spasms
     Dosage: 20 MG/DAY
     Route: 048
     Dates: start: 20200916, end: 20201013
  16. VIMPAT [Concomitant]
     Active Substance: LACOSAMIDE
     Dosage: 40 MG/DAY
     Route: 048
     Dates: start: 20201014, end: 20201110
  17. VIMPAT [Concomitant]
     Active Substance: LACOSAMIDE
     Dosage: 60 MG/DAY
     Route: 048
     Dates: start: 20201111, end: 20201208
  18. VIMPAT [Concomitant]
     Active Substance: LACOSAMIDE
     Dosage: 80 MG/DAY
     Route: 048
     Dates: start: 20201209, end: 20210105
  19. VIMPAT [Concomitant]
     Active Substance: LACOSAMIDE
     Dosage: 100 MG/DAY
     Route: 048
     Dates: start: 20210106, end: 20210119
  20. VIMPAT [Concomitant]
     Active Substance: LACOSAMIDE
     Dosage: 150 MG/DAY
     Route: 048
     Dates: start: 20210120, end: 20210226
  21. VIMPAT [Concomitant]
     Active Substance: LACOSAMIDE
     Dosage: 200 MG/DAY
     Route: 048
     Dates: start: 20210128

REACTIONS (6)
  - Pneumonia aspiration [Recovered/Resolved]
  - Pneumonia aspiration [Recovered/Resolved]
  - Cachexia [Recovered/Resolved]
  - Epstein-Barr virus infection [Recovered/Resolved]
  - Dysphagia [Recovered/Resolved]
  - Increased bronchial secretion [Recovered/Resolved]

NARRATIVE: CASE EVENT DATE: 20171216
